FAERS Safety Report 4456329-4 (Version None)
Quarter: 2004Q3

REPORT INFORMATION
  Report Type: 
  Country: None (occurrence: None)
  Receive Date: 20040917
  Receipt Date: 20040903
  Transmission Date: 20050211
  Serious: Yes (Death, Hospitalization)
  Sender: FDA-Public Use
  Company Number: AZAUS200400037

PATIENT
  Age: 67 Year
  Sex: Male
  Weight: 75.2971 kg

DRUGS (14)
  1. VIDAZA [Suspect]
     Indication: MYELODYSPLASTIC SYNDROME
     Dosage: 100 MG/M^2 (DAILY X 5 DAYS), SUBCUTANEOUS
     Route: 058
     Dates: start: 20040719, end: 20040722
  2. PROCRIT [Concomitant]
  3. NIFEDIPINE [Concomitant]
  4. ATENOLOL [Concomitant]
  5. ZOCOR [Concomitant]
  6. MAXZIDE [Concomitant]
  7. LISINOPRIL [Concomitant]
  8. SOTALOL HCL [Concomitant]
  9. ASPIRIN [Concomitant]
  10. NITROGLYCERIN [Concomitant]
  11. CEPTAZ (CEFTAZIDIME) [Concomitant]
  12. PRINIVIL [Concomitant]
  13. PROCARDIA XL [Concomitant]
  14. ZANTAC [Concomitant]

REACTIONS (9)
  - ASTHENIA [None]
  - ATRIAL FIBRILLATION [None]
  - CARDIAC ARREST [None]
  - CARDIAC FAILURE CONGESTIVE [None]
  - ELECTROMECHANICAL DISSOCIATION [None]
  - FLUID OVERLOAD [None]
  - HAEMODIALYSIS [None]
  - PYREXIA [None]
  - RENAL FAILURE ACUTE [None]
